FAERS Safety Report 9909603 (Version 2)
Quarter: 2014Q2

REPORT INFORMATION
  Report Type: Spontaneous
  Country: FR (occurrence: FR)
  Receive Date: 20140219
  Receipt Date: 20140521
  Transmission Date: 20141212
  Serious: No
  Sender: FDA-Public Use
  Company Number: FR-ASTRAZENECA-2014SE10126

PATIENT
  Age: 15288 Day
  Sex: Female
  Weight: 90 kg

DRUGS (4)
  1. XEROQUEL [Suspect]
     Indication: ANXIOLYTIC THERAPY
     Route: 048
     Dates: start: 20131218, end: 20131225
  2. TERALITHE [Concomitant]
     Indication: AFFECTIVE DISORDER
  3. ZYPREXA [Concomitant]
     Indication: AFFECTIVE DISORDER
  4. LEVOTHYROX [Concomitant]
     Indication: HYPOTHYROIDISM

REACTIONS (4)
  - Erythema [Recovered/Resolved]
  - Eyelid oedema [Recovered/Resolved]
  - Urticaria [Recovered/Resolved]
  - Off label use [Recovered/Resolved]
